FAERS Safety Report 6727372-7 (Version None)
Quarter: 2010Q2

REPORT INFORMATION
  Report Type: 
  Country: None (occurrence: None)
  Receive Date: 20100517
  Receipt Date: 20100511
  Transmission Date: 20101027
  Serious: Yes (Death, Life-Threatening, Hospitalization)
  Sender: FDA-Public Use
  Company Number: SE-CELGENEUS-150-21880-10031977

PATIENT
  Sex: Female
  Weight: 58 kg

DRUGS (3)
  1. REVLIMID [Suspect]
     Indication: MULTIPLE MYELOMA
     Route: 048
     Dates: start: 20100222, end: 20100304
  2. ASPIRIN [Concomitant]
     Indication: THROMBOSIS PROPHYLAXIS
     Route: 065
  3. LOW MOLECULAR WEIGHT HEPARIN [Concomitant]
     Indication: THROMBOSIS PROPHYLAXIS
     Route: 065

REACTIONS (1)
  - PULMONARY EMBOLISM [None]
